FAERS Safety Report 8635606 (Version 3)
Quarter: 2012Q4

REPORT INFORMATION
  Report Type: Report from Study
  Country: DE (occurrence: DE)
  Receive Date: 20120626
  Receipt Date: 20121214
  Transmission Date: 20130627
  Serious: Yes (Hospitalization)
  Sender: FDA-Public Use
  Company Number: DE-ROCHE-1080125

PATIENT
  Age: 60 Year
  Sex: Male
  Weight: 57 kg

DRUGS (7)
  1. TOCILIZUMAB [Suspect]
     Indication: RHEUMATOID ARTHRITIS
     Route: 042
     Dates: start: 20101117, end: 20110816
  2. TOCILIZUMAB [Suspect]
     Route: 042
     Dates: start: 20110517
  3. TOCILIZUMAB [Suspect]
     Route: 042
     Dates: start: 20110615
  4. TOCILIZUMAB [Suspect]
     Route: 042
     Dates: start: 20110719
  5. TOCILIZUMAB [Suspect]
     Route: 042
     Dates: start: 20110816
  6. METHOTREXATE [Suspect]
     Indication: RHEUMATOID ARTHRITIS
     Route: 058
     Dates: start: 201109
  7. SYNTESTAN [Concomitant]
     Indication: RHEUMATOID ARTHRITIS
     Route: 048
     Dates: start: 201105

REACTIONS (6)
  - Soft tissue disorder [Not Recovered/Not Resolved]
  - Infection [Recovering/Resolving]
  - Wound dehiscence [Recovered/Resolved]
  - Fistula [Unknown]
  - Impaired healing [Unknown]
  - Pseudarthrosis [Unknown]
